FAERS Safety Report 5489917-7 (Version None)
Quarter: 2007Q4

REPORT INFORMATION
  Report Type: 
  Country: None (occurrence: None)
  Receive Date: 20071018
  Receipt Date: 20071008
  Transmission Date: 20080405
  Serious: Yes (Other)
  Sender: FDA-Public Use
  Company Number: US-PFIZER INC-2007084473

PATIENT
  Age: 24 Year
  Sex: Male

DRUGS (8)
  1. ZITHROMAX [Suspect]
     Dosage: DAILY DOSE:600MG-FREQ:FREQUENCY: QD
  2. ETIBI [Suspect]
     Dosage: DAILY DOSE:800MG-FREQ:FREQUENCY: QD
  3. KALETRA [Suspect]
     Dosage: TEXT:3 DF-FREQ:FREQUENCY: BID
  4. REYATAZ [Suspect]
     Dosage: DAILY DOSE:300MG-FREQ:FREQUENCY: QD
     Route: 048
  5. LAMIVUDINE [Suspect]
     Dosage: DAILY DOSE:150MG-FREQ:FREQUENCY: BID
  6. VIREAD [Suspect]
     Dosage: DAILY DOSE:300MG-FREQ:FREQUENCY: QD
  7. BACTRIM [Suspect]
     Dosage: TEXT:1 DF-FREQ:FREQUENCY: QD
  8. VIDEX [Suspect]
     Dosage: DAILY DOSE:250MG-FREQ:FREQUENCY: QD

REACTIONS (7)
  - ABDOMINAL PAIN [None]
  - BACTERIAL INFECTION [None]
  - GASTRITIS [None]
  - HEPATOMEGALY [None]
  - ILEUS PARALYTIC [None]
  - LYMPHADENOPATHY [None]
  - WEIGHT DECREASED [None]
